FAERS Safety Report 16475144 (Version 1)
Quarter: 2019Q2

REPORT INFORMATION
  Report Type: Spontaneous
  Country: US (occurrence: US)
  Receive Date: 20190625
  Receipt Date: 20190625
  Transmission Date: 20190711
  Serious: Yes (Other)
  Sender: FDA-Public Use
  Company Number: US-BIOMARINAP-US-2019-124302

PATIENT
  Age: 21 Year
  Sex: Male
  Weight: 122.8 kg

DRUGS (1)
  1. PALYNZIQ [Suspect]
     Active Substance: PEGVALIASE-PQPZ
     Indication: PHENYLKETONURIA
     Dosage: UNK, QD
     Route: 058

REACTIONS (13)
  - Chest pain [Unknown]
  - Wheezing [Unknown]
  - Anaphylactoid reaction [Unknown]
  - Hyperhidrosis [Unknown]
  - Back pain [Unknown]
  - Mydriasis [Unknown]
  - Heart rate increased [Unknown]
  - Blindness transient [Unknown]
  - Dyspnoea [Unknown]
  - Dizziness [Unknown]
  - Injection site bruising [Unknown]
  - Vision blurred [Unknown]
  - Cyanosis [Unknown]

NARRATIVE: CASE EVENT DATE: 20190619
